FAERS Safety Report 18561511 (Version 1)
Quarter: 2020Q4

REPORT INFORMATION
  Report Type: Report from Study
  Country: IL (occurrence: IL)
  Receive Date: 20201130
  Receipt Date: 20201130
  Transmission Date: 20210114
  Serious: Yes (Hospitalization)
  Sender: FDA-Public Use
  Company Number: NVSC2020IL315198

PATIENT
  Age: 61 Year
  Sex: Female

DRUGS (3)
  1. SANDOSTATIN LAR DEPOT [Suspect]
     Active Substance: OCTREOTIDE ACETATE
     Indication: NEUROENDOCRINE TUMOUR
     Dosage: 30 MG, QMO
     Route: 030
     Dates: start: 20190212
  2. SANDOSTATIN LAR DEPOT [Suspect]
     Active Substance: OCTREOTIDE ACETATE
  3. SANDOSTATIN LAR DEPOT [Suspect]
     Active Substance: OCTREOTIDE ACETATE

REACTIONS (6)
  - Neck pain [Not Recovered/Not Resolved]
  - Umbilical hernia [Recovered/Resolved]
  - Asthenia [Not Recovered/Not Resolved]
  - Diaphragmatic hernia [Recovered/Resolved]
  - Cervical radiculopathy [Unknown]
  - Muscular weakness [Unknown]

NARRATIVE: CASE EVENT DATE: 20201109
